FAERS Safety Report 25120735 (Version 1)
Quarter: 2025Q1

REPORT INFORMATION
  Report Type: Spontaneous
  Country: US (occurrence: US)
  Receive Date: 20250325
  Receipt Date: 20250325
  Transmission Date: 20250409
  Serious: No
  Sender: BIOMARIN
  Company Number: US-BIOMARINAP-US-2025-164807

PATIENT

DRUGS (1)
  1. VOXZOGO [Suspect]
     Active Substance: VOSORITIDE
     Indication: Product used for unknown indication
     Route: 065
     Dates: start: 20250306

REACTIONS (3)
  - Nasal congestion [Unknown]
  - Eye discharge [Unknown]
  - Ear infection [Unknown]

NARRATIVE: CASE EVENT DATE: 20250306
